FAERS Safety Report 22137629 (Version 1)
Quarter: 2023Q1

REPORT INFORMATION
  Report Type: Report from Study
  Country: US (occurrence: US)
  Receive Date: 20230325
  Receipt Date: 20230325
  Transmission Date: 20230418
  Serious: No
  Sender: FDA-Public Use
  Company Number: US-002147023-NVSC2023US065618

PATIENT
  Age: 6 Year
  Sex: Male

DRUGS (1)
  1. VIJOICE [Suspect]
     Active Substance: ALPELISIB
     Indication: PIK3CA related overgrowth spectrum
     Dosage: 50 MG, QD
     Route: 048
     Dates: start: 20230103

REACTIONS (4)
  - Blood glucose decreased [Unknown]
  - Frequent bowel movements [Unknown]
  - Wrong technique in product usage process [Unknown]
  - Product packaging issue [Unknown]

NARRATIVE: CASE EVENT DATE: 20230103
